FAERS Safety Report 5593254-X (Version None)
Quarter: 2008Q1

REPORT INFORMATION
  Report Type: 
  Country: None (occurrence: None)
  Receive Date: 20080115
  Receipt Date: 20080115
  Transmission Date: 20080703
  Serious: Yes (Life-Threatening, Hospitalization, Other)
  Sender: FDA-Public Use
  Company Number: None

PATIENT
  Sex: Female
  Weight: 56.6996 kg

DRUGS (1)
  1. LEVAQUIN [Suspect]
     Indication: BACTERIAL INFECTION
     Dosage: 1500 MG -2 PILLS- FOR 5 DAYS PO
     Route: 048
     Dates: start: 20070625, end: 20070701

REACTIONS (24)
  - AGITATION [None]
  - ALOPECIA [None]
  - ANXIETY [None]
  - ARTHRALGIA [None]
  - BACK PAIN [None]
  - CLOSTRIDIUM DIFFICILE COLITIS [None]
  - DEPERSONALISATION [None]
  - EMOTIONAL DISORDER [None]
  - HYPERTENSION [None]
  - HYPOAESTHESIA [None]
  - LIVER DISORDER [None]
  - MUSCLE DISORDER [None]
  - MUSCULOSKELETAL PAIN [None]
  - MYALGIA [None]
  - NECK PAIN [None]
  - NEUROPATHY PERIPHERAL [None]
  - OVERDOSE [None]
  - PAIN [None]
  - PARANOIA [None]
  - SYNCOPE [None]
  - TACHYCARDIA [None]
  - TENDONITIS [None]
  - TINNITUS [None]
  - VISION BLURRED [None]
